FAERS Safety Report 13667365 (Version 2)
Quarter: 2017Q3

REPORT INFORMATION
  Report Type: Spontaneous
  Country: GB (occurrence: GB)
  Receive Date: 20170620
  Receipt Date: 20170801
  Transmission Date: 20171127
  Serious: Yes (Other)
  Sender: FDA-Public Use
  Company Number: GB-TORRENT-00015225

PATIENT
  Age: 34 Year
  Sex: Female
  Weight: 66 kg

DRUGS (7)
  1. CLARITHROMYCIN. [Concomitant]
     Active Substance: CLARITHROMYCIN
  2. IBUPROFEN. [Concomitant]
     Active Substance: IBUPROFEN
  3. CYCLIZINE [Suspect]
     Active Substance: CYCLIZINE
  4. ONDANSETRON [Concomitant]
     Active Substance: ONDANSETRON
  5. AMOXICILLIN. [Concomitant]
     Active Substance: AMOXICILLIN
  6. PARACETAMOL [Concomitant]
     Active Substance: ACETAMINOPHEN
  7. DULOXETINE. [Interacting]
     Active Substance: DULOXETINE

REACTIONS (5)
  - Tachycardia [Recovered/Resolved with Sequelae]
  - Dyspnoea [Unknown]
  - Palpitations [Not Recovered/Not Resolved]
  - Respiratory depression [Unknown]
  - Drug interaction [Unknown]

NARRATIVE: CASE EVENT DATE: 20170302
